FAERS Safety Report 9272997 (Version 1)
Quarter: 2013Q2

REPORT INFORMATION
  Report Type: Report from Study
  Country: US (occurrence: US)
  Receive Date: 20130506
  Receipt Date: 20130506
  Transmission Date: 20140414
  Serious: Yes (Hospitalization)
  Sender: FDA-Public Use
  Company Number: US-PFIZER INC-2011178348

PATIENT
  Age: 77 Year
  Sex: Female

DRUGS (12)
  1. BENICAR [Suspect]
     Indication: PRODUCT USED FOR UNKNOWN INDICATION
     Dosage: UNK
     Route: 065
  2. BENICAR [Suspect]
     Dosage: DOUBLE DOSE
     Route: 065
     Dates: start: 20110620, end: 20110622
  3. BENICAR [Suspect]
     Dosage: UNK
     Route: 065
  4. VERAPAMIL HCL [Suspect]
     Indication: PRODUCT USED FOR UNKNOWN INDICATION
     Dosage: DOUBLE DOSE
  5. VERAPAMIL HCL [Suspect]
     Dosage: 240 MG
     Dates: start: 20110620, end: 20110622
  6. LISINOPRIL [Suspect]
     Indication: PRODUCT USED FOR UNKNOWN INDICATION
     Dosage: DOUBLE DOSE
  7. LISINOPRIL [Suspect]
     Dosage: 20 MG
     Dates: start: 20110620, end: 20110622
  8. SAXAGLIPTIN [Suspect]
     Indication: TYPE 2 DIABETES MELLITUS
     Dosage: UNK
     Dates: start: 20100927
  9. METFORMIN HYDROCHLORIDE [Suspect]
     Indication: TYPE 2 DIABETES MELLITUS
     Dosage: 1000 MG
  10. HYDROCHLOROTHIAZIDE [Suspect]
     Indication: PRODUCT USED FOR UNKNOWN INDICATION
     Dosage: DOUBLE DOSE
  11. HYDROCHLOROTHIAZIDE [Suspect]
     Dosage: 12.5 MG
     Dates: start: 20110620, end: 20110622
  12. ASPIRIN [Concomitant]
     Indication: PRODUCT USED FOR UNKNOWN INDICATION
     Dosage: UNKNOWN
     Route: 065

REACTIONS (7)
  - Orthostatic hypotension [Recovered/Resolved]
  - Incorrect dose administered [Unknown]
  - Vomiting [Unknown]
  - Diarrhoea [Unknown]
  - Decreased appetite [Unknown]
  - Blood urea increased [Unknown]
  - Blood creatinine increased [Unknown]
